FAERS Safety Report 17647012 (Version 2)
Quarter: 2020Q2

REPORT INFORMATION
  Report Type: Report from Study
  Country: US (occurrence: US)
  Receive Date: 20200408
  Receipt Date: 20200413
  Transmission Date: 20200713
  Serious: Yes (Disabling)
  Sender: FDA-Public Use
  Company Number: US-TAKEDA-2020TUS017512

PATIENT
  Sex: Male

DRUGS (1)
  1. VEDOLIZUMAB [Suspect]
     Active Substance: VEDOLIZUMAB
     Indication: COLITIS ULCERATIVE
     Dosage: UNK
     Route: 042

REACTIONS (10)
  - Migraine [Unknown]
  - Tooth extraction [Unknown]
  - Sleep apnoea syndrome [Unknown]
  - Anxiety [Unknown]
  - Diabetes mellitus [Unknown]
  - Off label use [Unknown]
  - Bedridden [Unknown]
  - Ill-defined disorder [Unknown]
  - Pain [Unknown]
  - Chronic obstructive pulmonary disease [Unknown]
